FAERS Safety Report 7751955-9 (Version None)
Quarter: 2011Q3

REPORT INFORMATION
  Report Type: 
  Country: None (occurrence: None)
  Receive Date: 20110915
  Receipt Date: 20110906
  Transmission Date: 20111222
  Serious: Yes (Death, Hospitalization)
  Sender: FDA-Public Use
  Company Number: CA-JNJFOC-20110904924

PATIENT
  Age: 61 Year
  Sex: Female
  Weight: 66 kg

DRUGS (9)
  1. QUETIAPINE [Suspect]
     Route: 065
     Dates: start: 20091001
  2. QUETIAPINE [Suspect]
     Route: 065
     Dates: start: 20090901
  3. RISPERIDONE [Suspect]
     Indication: PRODUCT USED FOR UNKNOWN INDICATION
     Route: 065
  4. TRAZODONE HCL [Suspect]
     Indication: PRODUCT USED FOR UNKNOWN INDICATION
     Route: 065
  5. VENLAFAXINE HYDROCHLORIDE [Suspect]
     Indication: PRODUCT USED FOR UNKNOWN INDICATION
     Route: 065
  6. RISPERIDONE [Suspect]
     Dosage: IN THE MORNING
     Route: 065
  7. HALOPERIDOL [Suspect]
     Indication: PRODUCT USED FOR UNKNOWN INDICATION
     Route: 065
  8. QUETIAPINE [Suspect]
     Route: 065
  9. QUETIAPINE [Suspect]
     Indication: PRODUCT USED FOR UNKNOWN INDICATION
     Route: 065
     Dates: start: 20090401, end: 20090901

REACTIONS (5)
  - SEPTIC SHOCK [None]
  - ASPIRATION [None]
  - SEROTONIN SYNDROME [None]
  - DEATH [None]
  - NEUROLEPTIC MALIGNANT SYNDROME [None]
